FAERS Safety Report 10444660 (Version 2)
Quarter: 2014Q4

REPORT INFORMATION
  Report Type: Spontaneous
  Country: US (occurrence: US)
  Receive Date: 20140910
  Receipt Date: 20141107
  Transmission Date: 20150528
  Serious: Yes (Other)
  Sender: FDA-Public Use
  Company Number: US-BAYER-2014-130423

PATIENT
  Age: 24 Year
  Sex: Female
  Weight: 61.68 kg

DRUGS (1)
  1. MIRENA [Suspect]
     Active Substance: LEVONORGESTREL
     Indication: CONTRACEPTION
     Dosage: 20 MCG/24HR, CONT
     Route: 015
     Dates: start: 20100722, end: 20110822

REACTIONS (7)
  - Abdominal pain [None]
  - Device defective [None]
  - Genital haemorrhage [None]
  - Injury [None]
  - Vulvovaginal pain [None]
  - Device dislocation [None]
  - Pelvic pain [None]

NARRATIVE: CASE EVENT DATE: 201107
